FAERS Safety Report 7427857-4 (Version None)
Quarter: 2011Q2

REPORT INFORMATION
  Report Type: 
  Country: None (occurrence: None)
  Receive Date: 20110421
  Receipt Date: 20110411
  Transmission Date: 20111010
  Serious: Yes (Life-Threatening, Hospitalization)
  Sender: FDA-Public Use
  Company Number: DE-RANBAXY-2009RR-29331

PATIENT
  Age: 71 Year
  Sex: Male
  Weight: 96 kg

DRUGS (9)
  1. ACTRAPID [Concomitant]
  2. TORSEMIDE [Suspect]
     Indication: HYPERTENSION
     Dosage: 10 MG, QD
     Route: 048
     Dates: start: 20080601
  3. RAMIPRIL [Suspect]
     Indication: HYPERTENSION
     Dosage: 5 MG, QD
     Route: 048
     Dates: start: 20080601, end: 20090925
  4. SPIRONOLACTONE [Suspect]
     Indication: CIRRHOSIS ALCOHOLIC
     Dosage: 100 MG, BID
     Route: 048
     Dates: start: 20080601, end: 20090925
  5. PANTOZOL [Concomitant]
  6. TORSEMIDE [Concomitant]
     Dosage: 5 MG, QD
  7. OBSIDAN [Suspect]
     Indication: HYPERTENSION
     Dosage: 12.5 MG, TID
     Route: 048
     Dates: start: 20080601
  8. OMEPRAZOLE [Concomitant]
     Indication: PROPHYLAXIS AGAINST GASTROINTESTINAL ULCER
     Dosage: 40 MG, QD
     Route: 048
     Dates: start: 20080301, end: 20090925
  9. LEVEMIR [Concomitant]

REACTIONS (4)
  - HYPOTENSION [None]
  - HYPERKALAEMIA [None]
  - RENAL FAILURE ACUTE [None]
  - BRADYCARDIA [None]
